FAERS Safety Report 5816016-4 (Version None)
Quarter: 2008Q3

REPORT INFORMATION
  Report Type: 
  Country: None (occurrence: None)
  Receive Date: 20080716
  Receipt Date: 20070619
  Transmission Date: 20090109
  Serious: Yes (Other)
  Sender: FDA-Public Use
  Company Number: 2007US001437

PATIENT
  Age: 75 Year
  Sex: Male

DRUGS (1)
  1. ADENOSCAN [Suspect]
     Indication: SCAN MYOCARDIAL PERFUSION
     Dosage: 140 UG/KG, PARENTERAL
     Route: 051

REACTIONS (2)
  - ATRIOVENTRICULAR BLOCK [None]
  - HEART RATE ABNORMAL [None]
